FAERS Safety Report 14578636 (Version 1)
Quarter: 2018Q1

REPORT INFORMATION
  Report Type: Spontaneous
  Country: US (occurrence: US)
  Receive Date: 20180227
  Receipt Date: 20180227
  Transmission Date: 20180509
  Serious: Yes (Death)
  Sender: FDA-Public Use
  Company Number: US-TEVA-2018-US-865032

PATIENT
  Age: 59 Year
  Sex: Female

DRUGS (2)
  1. GABAPENTINE [Concomitant]
     Active Substance: GABAPENTIN
  2. FENTANYL. [Suspect]
     Active Substance: FENTANYL
     Route: 062
     Dates: start: 20120301, end: 20120309

REACTIONS (1)
  - Toxicity to various agents [Fatal]
